FAERS Safety Report 6934949-2 (Version None)
Quarter: 2010Q3

REPORT INFORMATION
  Report Type: 
  Country: None (occurrence: None)
  Receive Date: 20100821
  Receipt Date: 20100812
  Transmission Date: 20110219
  Serious: Yes (Death, Hospitalization)
  Sender: FDA-Public Use
  Company Number: PHFR2010GB02138

PATIENT
  Age: 43 Year
  Sex: Female
  Weight: 89 kg

DRUGS (7)
  1. FEMARA [Suspect]
     Indication: BREAST CANCER
     Dosage: 2.5 MG, UNK
     Route: 048
     Dates: start: 20100623
  2. ZOLADEX [Suspect]
     Indication: BREAST CANCER
     Dosage: 3.6 MG, UNK
     Route: 058
     Dates: start: 20100623
  3. ANTIEMETICS [Concomitant]
     Indication: BREAST CANCER
  4. CYCLOPHOSPHAMIDE [Concomitant]
     Indication: BREAST CANCER
     Dosage: 1160 MG, UNK
     Route: 042
     Dates: start: 20100129, end: 20100518
  5. EPIRUBICIN [Concomitant]
     Indication: BREAST CANCER
     Dosage: 174 MG, UNK
     Route: 042
     Dates: start: 20100129, end: 20100518
  6. RADIOTHERAPY [Concomitant]
     Dosage: UNK
     Dates: start: 20100501, end: 20100601
  7. STEROIDS NOS [Concomitant]
     Indication: BREAST CANCER

REACTIONS (7)
  - ACUTE HEPATIC FAILURE [None]
  - CONTUSION [None]
  - DISSEMINATED INTRAVASCULAR COAGULATION [None]
  - HYPOPERFUSION [None]
  - JAUNDICE [None]
  - MULTI-ORGAN FAILURE [None]
  - OEDEMA [None]
